FAERS Safety Report 16579946 (Version 2)
Quarter: 2019Q3

REPORT INFORMATION
  Report Type: Spontaneous
  Country: US (occurrence: US)
  Receive Date: 20190716
  Receipt Date: 20190808
  Transmission Date: 20191004
  Serious: No
  Sender: FDA-Public Use
  Company Number: US-MYLANLABS-2019M1061171

PATIENT
  Age: 29 Year
  Sex: Male

DRUGS (2)
  1. VANCOMYCIN HYDROCHLORIDE FOR INJECTION USP [Suspect]
     Active Substance: VANCOMYCIN HYDROCHLORIDE
     Indication: PRODUCT USED FOR UNKNOWN INDICATION
     Dosage: UNK UNK, Q8H (83.33 ML/HR OVER 180 MINS EVERY 8 HOURS)
     Route: 041
     Dates: start: 20190609, end: 201906
  2. VANCOMYCIN HYDROCHLORIDE FOR INJECTION USP [Suspect]
     Active Substance: VANCOMYCIN HYDROCHLORIDE
     Dosage: UNK UNK, BID (83.33 ML/HOUR OVER 120 MINUTES EVERY 12 HOURS)
     Route: 041
     Dates: start: 201906, end: 20190612

REACTIONS (3)
  - Product preparation issue [Unknown]
  - Extra dose administered [Unknown]
  - Therapeutic product effect increased [Recovered/Resolved]

NARRATIVE: CASE EVENT DATE: 201906
